FAERS Safety Report 4907498-0 (Version None)
Quarter: 2006Q1

REPORT INFORMATION
  Report Type: 
  Country: None (occurrence: None)
  Receive Date: 20060210
  Receipt Date: 20060202
  Transmission Date: 20060701
  Serious: Yes (Other)
  Sender: FDA-Public Use
  Company Number: ES-MERCK-0602ESP00012

PATIENT
  Age: 58 Year
  Sex: Female

DRUGS (5)
  1. ZETIA [Suspect]
     Indication: HYPERCHOLESTEROLAEMIA
     Route: 048
     Dates: start: 20050401, end: 20051001
  2. MYCOPHENOLATE MOFETIL [Suspect]
     Indication: PROPHYLAXIS AGAINST TRANSPLANT REJECTION
     Route: 048
  3. MYCOPHENOLATE MOFETIL [Suspect]
     Indication: IMMUNOSUPPRESSION
     Route: 048
  4. TACROLIMUS [Suspect]
     Indication: PROPHYLAXIS AGAINST TRANSPLANT REJECTION
     Route: 048
  5. TACROLIMUS [Suspect]
     Indication: IMMUNOSUPPRESSION
     Route: 048

REACTIONS (2)
  - DRUG INTERACTION [None]
  - TRANSAMINASES INCREASED [None]
